FAERS Safety Report 8008685-8 (Version None)
Quarter: 2011Q4

REPORT INFORMATION
  Report Type: 
  Country: None (occurrence: None)
  Receive Date: 20111227
  Receipt Date: 20111216
  Transmission Date: 20120403
  Serious: Yes (Hospitalization)
  Sender: FDA-Public Use
  Company Number: JP-MERCK-1112USA02701

PATIENT
  Age: 38 Year
  Sex: Male

DRUGS (1)
  1. PROPECIA [Suspect]
     Dosage: DAILY DOSAGE UNKNOWN
     Route: 048

REACTIONS (1)
  - HEPATIC FUNCTION ABNORMAL [None]
